FAERS Safety Report 17287575 (Version 6)
Quarter: 2020Q2

REPORT INFORMATION
  Report Type: Report from Study
  Country: US (occurrence: US)
  Receive Date: 20200120
  Receipt Date: 20200609
  Transmission Date: 20200713
  Serious: No
  Sender: FDA-Public Use
  Company Number: NVSC2020US012627

PATIENT
  Age: 64 Year
  Sex: Female

DRUGS (2)
  1. COSENTYX [Suspect]
     Active Substance: SECUKINUMAB
     Indication: ANKYLOSING SPONDYLITIS
     Dosage: 300 MG, Q2W
     Route: 058
  2. COSENTYX [Suspect]
     Active Substance: SECUKINUMAB
     Indication: PRODUCT USED FOR UNKNOWN INDICATION
     Dosage: 150 MG, UNKNOWN
     Route: 058
     Dates: start: 20191031

REACTIONS (11)
  - Confusional state [Recovering/Resolving]
  - Musculoskeletal pain [Unknown]
  - Inappropriate schedule of product administration [Recovering/Resolving]
  - Flushing [Unknown]
  - Vision blurred [Unknown]
  - Anxiety [Unknown]
  - Blood pressure abnormal [Unknown]
  - Headache [Unknown]
  - Chest discomfort [Recovered/Resolved]
  - Joint stiffness [Unknown]
  - Feeling abnormal [Unknown]

NARRATIVE: CASE EVENT DATE: 20191031
